FAERS Safety Report 15312613 (Version 1)
Quarter: 2018Q3

REPORT INFORMATION
  Report Type: Spontaneous
  Country: US (occurrence: US)
  Receive Date: 20180823
  Receipt Date: 20180823
  Transmission Date: 20181010
  Serious: Yes (Other)
  Sender: FDA-Public Use
  Company Number: US-IRONWOOD PHARMACEUTICALS, INC.-IRWD2018000889

PATIENT
  Age: 48 Year
  Sex: Male
  Weight: 117.46 kg

DRUGS (4)
  1. AMLODIPINE [Concomitant]
     Active Substance: AMLODIPINE BESYLATE
     Indication: PRODUCT USED FOR UNKNOWN INDICATION
     Dosage: 5 MG, UNK
  2. ALLOPURINOL. [Concomitant]
     Active Substance: ALLOPURINOL
     Indication: PRODUCT USED FOR UNKNOWN INDICATION
     Dosage: 300 MG, UNK
  3. DUZALLO [Suspect]
     Active Substance: ALLOPURINOL\LESINURAD
     Indication: GOUT
     Dosage: 200/300 MG (FREQUENCY UNKNOWN)
     Route: 065
     Dates: start: 20180219
  4. BENICAR [Concomitant]
     Active Substance: OLMESARTAN MEDOXOMIL
     Indication: PRODUCT USED FOR UNKNOWN INDICATION
     Dosage: 40 MG, UNK

REACTIONS (1)
  - Rash [Unknown]

NARRATIVE: CASE EVENT DATE: 20180219
